FAERS Safety Report 16674516 (Version 2)
Quarter: 2019Q3

REPORT INFORMATION
  Report Type: Report from Study
  Country: IT (occurrence: IT)
  Receive Date: 20190806
  Receipt Date: 20190822
  Transmission Date: 20191004
  Serious: Yes (Other)
  Sender: FDA-Public Use
  Company Number: IT-MYLANLABS-2019M1073634

PATIENT
  Age: 64 Year
  Sex: Female

DRUGS (7)
  1. LEVETIRACETAM. [Suspect]
     Active Substance: LEVETIRACETAM
     Dosage: 500 MG TABLET DIVIDED IN HALF IN THE MORNING AND IN THE EVENING
  2. LEVETIRACETAM. [Suspect]
     Active Substance: LEVETIRACETAM
     Indication: SEIZURE PROPHYLAXIS
     Dosage: 500 MILLIGRAM, BID
  3. LEVETIRACETAM. [Suspect]
     Active Substance: LEVETIRACETAM
     Dosage: UNK UNK, BID
  4. CORTISONE [Suspect]
     Active Substance: CORTISONE
     Dosage: 120 GTT DROPS, QD
  5. LEVETIRACETAM. [Suspect]
     Active Substance: LEVETIRACETAM
     Dosage: 250 MG, 2X/DAY (BID)
     Route: 048
     Dates: start: 2012
  6. CORTISONE [Suspect]
     Active Substance: CORTISONE
     Indication: ADVERSE DRUG REACTION
     Dosage: 1 DOSAGE FORM, BID
     Route: 042
  7. LEVETIRACETAM. [Suspect]
     Active Substance: LEVETIRACETAM
     Dosage: 500 MG, 2X/DAY (BID)

REACTIONS (3)
  - Coma [Unknown]
  - Off label use [Unknown]
  - Metastases to central nervous system [Unknown]
